FAERS Safety Report 7187297-2 (Version None)
Quarter: 2010Q4

REPORT INFORMATION
  Report Type: 
  Country: None (occurrence: None)
  Receive Date: 20101222
  Receipt Date: 20101210
  Transmission Date: 20110411
  Serious: Yes (Other)
  Sender: FDA-Public Use
  Company Number: US-ELI_LILLY_AND_COMPANY-US201012003065

PATIENT
  Age: 42 Year
  Sex: Female

DRUGS (5)
  1. CYMBALTA [Suspect]
     Indication: NEURALGIA
     Dosage: 30 MG, DAILY (1/D)
     Dates: start: 20101201, end: 20101201
  2. ATENOLOL [Concomitant]
  3. GABAPENTIN [Concomitant]
  4. SUDAFED 12 HOUR [Concomitant]
     Indication: EAR CONGESTION
  5. LEVAQUIN [Concomitant]

REACTIONS (12)
  - DIZZINESS [None]
  - DYSTONIA [None]
  - EAR CONGESTION [None]
  - EAR PAIN [None]
  - HYPOAESTHESIA [None]
  - NAUSEA [None]
  - OFF LABEL USE [None]
  - PAIN IN JAW [None]
  - SWOLLEN TONGUE [None]
  - TOOTHACHE [None]
  - TRISMUS [None]
  - URTICARIA [None]
